FAERS Safety Report 19887577 (Version 1)
Quarter: 2021Q3

REPORT INFORMATION
  Report Type: Spontaneous
  Country: BE (occurrence: BE)
  Receive Date: 20210928
  Receipt Date: 20210928
  Transmission Date: 20211014
  Serious: Yes (Other)
  Sender: FDA-Public Use
  Company Number: BE-009507513-2109BEL006154

PATIENT
  Age: 57 Year
  Sex: Male

DRUGS (2)
  1. TEMODAL [Suspect]
     Active Substance: TEMOZOLOMIDE
     Indication: GLIOBLASTOMA MULTIFORME
     Dosage: 140 MG/DAY
     Dates: start: 20210324, end: 20210506
  2. TEMODAL [Suspect]
     Active Substance: TEMOZOLOMIDE
     Dosage: IN MONOTHERAPY, 5 DAYS PER MONTH FOR 6 CYCLES
     Dates: start: 2021

REACTIONS (2)
  - Inappropriate schedule of product administration [Unknown]
  - Glioblastoma [Unknown]

NARRATIVE: CASE EVENT DATE: 2021
